FAERS Safety Report 5500504-4 (Version None)
Quarter: 2007Q4

REPORT INFORMATION
  Report Type: 
  Country: None (occurrence: None)
  Receive Date: 20071025
  Receipt Date: 20071015
  Transmission Date: 20080405
  Serious: Yes (Hospitalization, Other)
  Sender: FDA-Public Use
  Company Number: 238117K07USA

PATIENT
  Age: 25 Year
  Sex: Female
  Weight: 63.5036 kg

DRUGS (3)
  1. REBIF [Suspect]
     Indication: MULTIPLE SCLEROSIS
     Dosage: 22 MCG, 3 IN 1 WEEKS, SUBCUTANEOUS
     Route: 058
     Dates: start: 20070827
  2. WELLBUTRIN [Concomitant]
  3. VITAMIN D [Concomitant]

REACTIONS (4)
  - BALANCE DISORDER [None]
  - CONDITION AGGRAVATED [None]
  - CONVULSION [None]
  - MULTIPLE SCLEROSIS [None]
